FAERS Safety Report 8119779-0 (Version None)
Quarter: 2012Q1

REPORT INFORMATION
  Report Type: 
  Country: None (occurrence: None)
  Receive Date: 20120207
  Receipt Date: 20120116
  Transmission Date: 20120608
  Serious: Yes (Hospitalization)
  Sender: FDA-Public Use
  Company Number: ES-GLAXOSMITHKLINE-B0776811A

PATIENT
  Sex: Male

DRUGS (10)
  1. CYTARABINE [Suspect]
     Indication: HODGKIN'S DISEASE
     Route: 065
     Dates: start: 20111018, end: 20111226
  2. ALLOPURINOL [Concomitant]
     Indication: PROPHYLAXIS
     Dosage: 300MG PER DAY
     Route: 048
     Dates: start: 20070302
  3. ETOPOSIDE [Suspect]
     Indication: HODGKIN'S DISEASE
     Route: 065
     Dates: start: 20111010, end: 20111225
  4. CISPLATIN [Suspect]
     Indication: HODGKIN'S DISEASE
     Route: 065
     Dates: start: 20111010, end: 20111225
  5. METHYLPREDNISOLONE [Suspect]
     Indication: HODGKIN'S DISEASE
     Route: 065
     Dates: start: 20111010, end: 20111225
  6. SIMVASTATIN [Concomitant]
     Indication: HYPERCHOLESTEROLAEMIA
     Dosage: 20MG PER DAY
     Route: 048
     Dates: start: 20100527
  7. ARZERRA [Suspect]
     Indication: HODGKIN'S DISEASE
     Dosage: 1000MG CYCLIC
     Route: 065
     Dates: start: 20111014, end: 20111226
  8. ENALAPRIL MALEATE [Concomitant]
     Indication: HYPERTENSION
     Dosage: 20MG PER DAY
     Route: 048
     Dates: start: 20080213
  9. OMEPRAZOLE [Concomitant]
     Indication: PROPHYLAXIS
     Dosage: 20MG PER DAY
     Route: 048
     Dates: start: 20111014
  10. ASPIRIN [Concomitant]
     Indication: CEREBROVASCULAR ACCIDENT
     Dosage: 150MG PER DAY
     Route: 048
     Dates: start: 20090817

REACTIONS (1)
  - FEBRILE NEUTROPENIA [None]
